FAERS Safety Report 17845616 (Version 5)
Quarter: 2022Q2

REPORT INFORMATION
  Report Type: Spontaneous
  Country: US (occurrence: US)
  Receive Date: 20200601
  Receipt Date: 20220421
  Transmission Date: 20220721
  Serious: No
  Sender: FDA-Public Use
  Company Number: US-PFIZER INC-2020168626

PATIENT
  Age: 73 Year
  Sex: Female
  Weight: 84 kg

DRUGS (2)
  1. CELEBREX [Suspect]
     Active Substance: CELECOXIB
     Indication: Back pain
     Dosage: 200 MG, 1X/DAY
     Route: 048
     Dates: start: 2000
  2. CELEBREX [Suspect]
     Active Substance: CELECOXIB
     Indication: Arthritis
     Dosage: 200 MG, ALTERNATE DAY (EVERY OTHER DAY)
     Route: 048
     Dates: start: 202005

REACTIONS (2)
  - Intentional product misuse [Unknown]
  - Memory impairment [Unknown]

NARRATIVE: CASE EVENT DATE: 20200501
